FAERS Safety Report 6709262 (Version 19)
Quarter: 2014Q1

REPORT INFORMATION
  Report Type: Spontaneous
  Country: US (occurrence: US)
  Receive Date: 20080724
  Receipt Date: 20140217
  Transmission Date: 20141002
  Serious: Yes (Other)
  Sender: FDA-Public Use
  Company Number: PHEH2008US06327

PATIENT
  Sex: Female
  Weight: 73.47 kg

DRUGS (8)
  1. ZOMETA [Suspect]
     Indication: OSTEOPOROSIS
     Route: 041
     Dates: end: 200701
  2. FEMARA [Suspect]
     Dates: end: 2006
  3. NEXIUM [Concomitant]
  4. CHEMOTHERAPEUTICS NOS [Concomitant]
  5. FOSAMAX [Concomitant]
  6. CALCIUM [Concomitant]
  7. EVISTA [Concomitant]
  8. LIPITOR                                 /UNK/ [Concomitant]

REACTIONS (76)
  - Depression [Unknown]
  - Osteopenia [Unknown]
  - Osteonecrosis of jaw [Unknown]
  - Pain [Unknown]
  - Discomfort [Unknown]
  - Scar [Unknown]
  - Mastication disorder [Unknown]
  - Emotional distress [Unknown]
  - Anxiety [Unknown]
  - Quality of life decreased [Unknown]
  - Injury [Unknown]
  - Periodontal disease [Unknown]
  - Toothache [Unknown]
  - Palpitations [Unknown]
  - Chest discomfort [Unknown]
  - Chest pain [Unknown]
  - Hiatus hernia [Unknown]
  - Gastritis [Unknown]
  - Duodenitis [Unknown]
  - Gingival pain [Unknown]
  - Large intestine polyp [Unknown]
  - Pollakiuria [Unknown]
  - Thirst [Unknown]
  - Pyrexia [Unknown]
  - Productive cough [Unknown]
  - Oropharyngeal pain [Unknown]
  - Headache [Unknown]
  - Oedema peripheral [Unknown]
  - Balance disorder [Unknown]
  - Hearing impaired [Unknown]
  - Myalgia [Unknown]
  - Arthralgia [Unknown]
  - Cough [Unknown]
  - Decreased appetite [Unknown]
  - Fatigue [Unknown]
  - Constipation [Unknown]
  - Dysphagia [Unknown]
  - Contusion [Unknown]
  - Haemorrhage [Unknown]
  - Visual impairment [Unknown]
  - Dysgeusia [Unknown]
  - Bone pain [Unknown]
  - Insomnia [Unknown]
  - Temperature intolerance [Unknown]
  - Hypersensitivity [Unknown]
  - Seborrhoeic keratosis [Unknown]
  - Acrochordon [Unknown]
  - Colon adenoma [Unknown]
  - Vision blurred [Unknown]
  - Cataract [Unknown]
  - Eye disorder [Not Recovered/Not Resolved]
  - Macular degeneration [Unknown]
  - Astigmatism [Unknown]
  - Presbyopia [Unknown]
  - Skin papilloma [Unknown]
  - Benign neoplasm of skin [Unknown]
  - Haemangioma [Unknown]
  - Milia [Unknown]
  - Skin lesion [Unknown]
  - Spinal osteoarthritis [Unknown]
  - Bone cyst [Unknown]
  - Haemangioma of bone [Unknown]
  - Lung hyperinflation [Unknown]
  - Myopia [Unknown]
  - Intervertebral disc protrusion [Unknown]
  - Lumbar spinal stenosis [Unknown]
  - Sinus disorder [Unknown]
  - Urinary tract infection [Unknown]
  - Eyelid ptosis [Unknown]
  - Plantar fasciitis [Unknown]
  - Tenderness [Unknown]
  - Pain in extremity [Unknown]
  - Ear disorder [Unknown]
  - Tooth loss [Unknown]
  - Upper respiratory tract infection [Unknown]
  - Vitamin D deficiency [Unknown]
